FAERS Safety Report 8112631-6 (Version None)
Quarter: 2012Q1

REPORT INFORMATION
  Report Type: 
  Country: None (occurrence: None)
  Receive Date: 20120203
  Receipt Date: 20120127
  Transmission Date: 20120608
  Serious: Yes (Life-Threatening, Hospitalization)
  Sender: FDA-Public Use
  Company Number: JP-NOVOPROD-341923

PATIENT
  Age: 63 Year
  Sex: Male
  Weight: 62 kg

DRUGS (6)
  1. NOVORAPID CHU [Concomitant]
     Indication: PRODUCT USED FOR UNKNOWN INDICATION
     Dosage: 16-4-4U, QD
  2. HUMULIN N [Concomitant]
     Dosage: 0-0-9U, QD
  3. VICTOZA [Suspect]
     Indication: TYPE 2 DIABETES MELLITUS
     Dosage: 0.3 MG, QD
     Route: 058
     Dates: start: 20110715
  4. AMARYL [Concomitant]
     Dosage: 0.5 MG, QD
  5. VICTOZA [Suspect]
     Dosage: 0.6 MG, QD
     Route: 058
     Dates: start: 20110720
  6. VICTOZA [Suspect]
     Dosage: 0.9 MG, QD
     Route: 058
     Dates: end: 20111219

REACTIONS (3)
  - DIABETIC KETOACIDOSIS [None]
  - CONSTIPATION [None]
  - DIARRHOEA [None]
